FAERS Safety Report 25500999 (Version 1)
Quarter: 2025Q3

REPORT INFORMATION
  Report Type: Spontaneous
  Country: GB (occurrence: GB)
  Receive Date: 20250701
  Receipt Date: 20250701
  Transmission Date: 20251021
  Serious: Yes (Other)
  Sender: ELI LILLY AND COMPANY
  Company Number: None

PATIENT
  Age: 62 Year
  Sex: Male

DRUGS (1)
  1. MOUNJARO [Suspect]
     Active Substance: TIRZEPATIDE
     Indication: Diabetes mellitus
     Route: 065
     Dates: start: 20250210

REACTIONS (4)
  - Blindness transient [Not Recovered/Not Resolved]
  - Optic ischaemic neuropathy [Unknown]
  - Vomiting projectile [Unknown]
  - Constipation [Unknown]

NARRATIVE: CASE EVENT DATE: 20250219
